FAERS Safety Report 14139178 (Version 5)
Quarter: 2018Q3

REPORT INFORMATION
  Report Type: Spontaneous
  Country: IT (occurrence: IT)
  Receive Date: 20171028
  Receipt Date: 20180829
  Transmission Date: 20181010
  Serious: Yes (Hospitalization)
  Sender: FDA-Public Use
  Company Number: IT-ROCHE-2011319

PATIENT
  Age: 50 Year
  Sex: Male
  Weight: 70 kg

DRUGS (5)
  1. RIVOTRIL [Suspect]
     Active Substance: CLONAZEPAM
     Dosage: 2.5 MG/ML,10ML BOTTLE
     Route: 048
     Dates: start: 20170613, end: 20170613
  2. BRINTELLIX [Suspect]
     Active Substance: VORTIOXETINE HYDROBROMIDE
     Indication: MAJOR DEPRESSION
     Dosage: 5 MG FILM COATED TABLETS, 28 TABLETS
     Route: 048
     Dates: start: 20170613, end: 20170613
  3. RIVOTRIL [Suspect]
     Active Substance: CLONAZEPAM
     Route: 048
     Dates: start: 201608
  4. BRINTELLIX [Suspect]
     Active Substance: VORTIOXETINE HYDROBROMIDE
     Route: 048
     Dates: start: 201608, end: 201608
  5. RIVOTRIL [Suspect]
     Active Substance: CLONAZEPAM
     Indication: MAJOR DEPRESSION
     Dosage: 2MG(20DROPS)
     Route: 048
     Dates: start: 20160831, end: 20170612

REACTIONS (5)
  - Overdose [Unknown]
  - Gamma-glutamyltransferase increased [Recovering/Resolving]
  - Drug ineffective [Unknown]
  - Suicide attempt [Unknown]
  - Hyperkalaemia [Recovering/Resolving]

NARRATIVE: CASE EVENT DATE: 20170613
